FAERS Safety Report 21028031 (Version 1)
Quarter: 2022Q2

REPORT INFORMATION
  Report Type: Report from Study
  Country: US (occurrence: US)
  Receive Date: 20220630
  Receipt Date: 20220630
  Transmission Date: 20220720
  Serious: Yes (Other)
  Sender: FDA-Public Use
  Company Number: US-BRISTOL-MYERS SQUIBB COMPANY-2022-060727

PATIENT
  Age: 79 Year
  Sex: Male
  Weight: 95.70 kg

DRUGS (1)
  1. POMALYST [Suspect]
     Active Substance: POMALIDOMIDE
     Indication: Plasma cell myeloma
     Route: 048

REACTIONS (4)
  - COVID-19 [Unknown]
  - Abdominal distension [Unknown]
  - Constipation [Unknown]
  - Nausea [Unknown]
